FAERS Safety Report 4521119-0 (Version None)
Quarter: 2004Q4

REPORT INFORMATION
  Report Type: 
  Country: None (occurrence: None)
  Receive Date: 20041203
  Receipt Date: 20041119
  Transmission Date: 20050328
  Serious: Yes (Life-Threatening)
  Sender: FDA-Public Use
  Company Number: 105485ISR

PATIENT
  Age: 69 Year
  Sex: Female

DRUGS (3)
  1. FLUOROURACIL [Suspect]
     Indication: BREAST CANCER
     Dosage: 880 MILLIGRAM INTRAVENOUS (NOS)
     Route: 042
     Dates: start: 20000522, end: 20000906
  2. CYCLOPHOSPHAMIDE [Suspect]
     Indication: BREAST CANCER
     Dosage: 880 MILLIGRAM INTRAVENOUS (NOS)
     Route: 042
     Dates: start: 20000522, end: 20000906
  3. EPIRUBICIN [Suspect]
     Indication: BREAST CANCER
     Dosage: 175 MILLIGRAM INTRAVENOUS (NOS)
     Route: 042
     Dates: start: 20000522, end: 20000906

REACTIONS (6)
  - CARDIAC FAILURE [None]
  - DYSPNOEA EXERTIONAL [None]
  - LEFT VENTRICULAR FAILURE [None]
  - MYOPERICARDITIS [None]
  - PERICARDIAL EFFUSION [None]
  - PULMONARY HYPERTENSION [None]
